FAERS Safety Report 16904392 (Version 1)
Quarter: 2019Q4

REPORT INFORMATION
  Report Type: Spontaneous
  Country: US (occurrence: US)
  Receive Date: 20190819
  Receipt Date: 20190819
  Transmission Date: 20200122
  Serious: Yes (Death)
  Sender: FDA-Public Use
  Company Number: None

PATIENT
  Age: 38 Year
  Sex: Male
  Weight: 70.8 kg

DRUGS (1)
  1. YESCARTA [Suspect]
     Active Substance: AXICABTAGENE CILOLEUCEL
     Indication: PRIMARY MEDIASTINAL LARGE B-CELL LYMPHOMA
     Dosage: ?          OTHER DOSE:MAX (2X10^8) 1 IV;?
     Route: 042
     Dates: start: 20190730

REACTIONS (7)
  - Hypotension [None]
  - Neutropenia [None]
  - Neurotoxicity [None]
  - Distributive shock [None]
  - Pulmonary embolism [None]
  - Hypoxia [None]
  - Fungaemia [None]

NARRATIVE: CASE EVENT DATE: 20190817
